FAERS Safety Report 20809686 (Version 3)
Quarter: 2022Q2

REPORT INFORMATION
  Report Type: Spontaneous
  Country: JP (occurrence: JP)
  Receive Date: 20220510
  Receipt Date: 20220617
  Transmission Date: 20220721
  Serious: Yes (Hospitalization)
  Sender: FDA-Public Use
  Company Number: JP-ELI_LILLY_AND_COMPANY-JP202205000227

PATIENT
  Age: 82 Year
  Sex: Female
  Weight: 54 kg

DRUGS (3)
  1. OLUMIANT [Suspect]
     Active Substance: BARICITINIB
     Indication: Rheumatoid arthritis
     Dosage: 4 MG, DAILY
     Route: 048
     Dates: start: 20210318, end: 20220422
  2. AZULFIDINE [Concomitant]
     Active Substance: SULFASALAZINE
     Indication: Rheumatoid arthritis
     Dosage: 1000 MG, DAILY
     Dates: start: 20181011, end: 20220422
  3. IGURATIMOD [Concomitant]
     Active Substance: IGURATIMOD
     Indication: Rheumatoid arthritis
     Dosage: 50 MG, DAILY
     Dates: start: 20181220, end: 20220422

REACTIONS (2)
  - Lymph node tuberculosis [Not Recovered/Not Resolved]
  - Bone tuberculosis [Not Recovered/Not Resolved]

NARRATIVE: CASE EVENT DATE: 20220422
